FAERS Safety Report 7043585-1 (Version None)
Quarter: 2010Q4

REPORT INFORMATION
  Report Type: 
  Country: None (occurrence: None)
  Receive Date: 20101013
  Receipt Date: 20101005
  Transmission Date: 20110411
  Serious: Yes (Hospitalization)
  Sender: FDA-Public Use
  Company Number: A0886011A

PATIENT
  Age: 19 Year
  Sex: Male
  Weight: 114 kg

DRUGS (4)
  1. ACYCLOVIR [Suspect]
     Indication: NEUTROPENIA
     Route: 065
     Dates: start: 20100101
  2. VANCOMYCIN [Concomitant]
     Indication: NEUTROPENIA
     Dates: start: 20100101
  3. PRIMAXIN [Concomitant]
     Indication: NEUTROPENIA
     Dates: start: 20100101
  4. UNKNOWN DRUG [Concomitant]
     Indication: NEUTROPENIA
     Dates: start: 20100101

REACTIONS (3)
  - ADVERSE EVENT [None]
  - APLASTIC ANAEMIA [None]
  - FEBRILE NEUTROPENIA [None]
